FAERS Safety Report 12448936 (Version 3)
Quarter: 2016Q2

REPORT INFORMATION
  Report Type: Spontaneous
  Country: KR (occurrence: KR)
  Receive Date: 20160608
  Receipt Date: 20160620
  Transmission Date: 20160815
  Serious: Yes (Other)
  Sender: FDA-Public Use
  Company Number: KR-009507513-1606KOR003142

PATIENT
  Age: 41 Year
  Sex: Male
  Weight: 69.5 kg

DRUGS (14)
  1. ALOXI [Concomitant]
     Active Substance: PALONOSETRON HYDROCHLORIDE
     Indication: PREMEDICATION
     Dosage: 1 VIAL, ONCE
     Route: 042
     Dates: start: 20150427, end: 20150427
  2. PHAZYME (SIMETHICONE) [Concomitant]
     Indication: PROPHYLAXIS
     Dosage: 3 TABLETS, TID
     Route: 048
     Dates: start: 201504, end: 20150507
  3. NEXIUM [Concomitant]
     Active Substance: ESOMEPRAZOLE MAGNESIUM
     Indication: GASTRIC ULCER
     Dosage: 2 TABLETS, BID
     Route: 048
     Dates: start: 201504, end: 20150428
  4. PAMOXIN (AMOXICILLIN) [Concomitant]
     Indication: PROPHYLAXIS
     Dosage: 8 CAPSULES, BID
     Route: 048
     Dates: start: 201504, end: 20150428
  5. ALMAGEL (ALMAGATE) [Concomitant]
     Indication: GASTRIC ULCER
     Dosage: 4 PACK, QID
     Route: 048
     Dates: start: 20150504, end: 20150518
  6. ENDOXAN [Concomitant]
     Active Substance: CYCLOPHOSPHAMIDE
     Indication: LYMPHOMA
     Dosage: 1350 MG, ONCE
     Route: 042
     Dates: start: 20150427, end: 20150427
  7. ILDONG ADRIAMYCIN PFS [Concomitant]
     Indication: LYMPHOMA
     Dosage: 90 MG, ONCE
     Route: 042
     Dates: start: 20150427, end: 20150427
  8. GANATON [Concomitant]
     Active Substance: ITOPRIDE
     Indication: GASTRIC ULCER
     Dosage: 3 TABLETS, TID
     Route: 048
     Dates: start: 201504, end: 201505
  9. SOLONDO [Concomitant]
     Active Substance: PREDNISOLONE
     Indication: PREMEDICATION
     Dosage: 100 MG, QD
     Route: 048
     Dates: start: 20150427, end: 20150428
  10. EMEND (FOSAPREPITANT DIMEGLUMINE) [Suspect]
     Active Substance: FOSAPREPITANT DIMEGLUMINE
     Indication: PROPHYLAXIS OF NAUSEA AND VOMITING
     Dosage: 150 MG, ONCE
     Route: 042
     Dates: start: 20150427, end: 20150427
  11. NEXIUM [Concomitant]
     Active Substance: ESOMEPRAZOLE MAGNESIUM
     Dosage: 2 TABLET, TID
     Route: 048
     Dates: start: 20150506, end: 20150515
  12. DBL VINCRISTINE SULFATE [Concomitant]
     Active Substance: VINCRISTINE SULFATE
     Indication: LYMPHOMA
     Dosage: 2 MG, ONCE
     Route: 042
     Dates: start: 20150427, end: 20150427
  13. CURAN [Concomitant]
     Active Substance: RANITIDINE HYDROCHLORIDE
     Indication: GASTRIC ULCER
     Dosage: 2 TABLETS, BID
     Route: 048
     Dates: start: 20150504, end: 20150505
  14. ALGIRON [Concomitant]
     Indication: GASTRIC ULCER
     Dosage: 3 TABLETS, TID
     Route: 048
     Dates: start: 20150504, end: 20150518

REACTIONS (2)
  - Neutropenia [Recovering/Resolving]
  - Peptic ulcer [Recovering/Resolving]

NARRATIVE: CASE EVENT DATE: 20150504
